FAERS Safety Report 18174438 (Version 1)
Quarter: 2020Q3

REPORT INFORMATION
  Report Type: Report from Study
  Country: US (occurrence: US)
  Receive Date: 20200820
  Receipt Date: 20200820
  Transmission Date: 20201103
  Serious: Yes (Hospitalization, Other)
  Sender: FDA-Public Use
  Company Number: US-AMGEN-USASL2019162957

PATIENT
  Age: 58 Year
  Sex: Female

DRUGS (8)
  1. XARELTO [Suspect]
     Active Substance: RIVAROXABAN
     Indication: PULMONARY EMBOLISM
     Dosage: UNK
     Route: 065
  2. ASPIRIN [ACETYLSALICYLIC ACID] [Concomitant]
     Active Substance: ASPIRIN
  3. REPATHA [Suspect]
     Active Substance: EVOLOCUMAB
     Indication: LIPIDS ABNORMAL
     Dosage: 140 MILLIGRAM, Q2WK
     Route: 065
  4. ARMOUR THYROID [Concomitant]
     Active Substance: THYROID, PORCINE
  5. SPIROLACTON [Concomitant]
  6. REPATHA [Suspect]
     Active Substance: EVOLOCUMAB
     Indication: LOW DENSITY LIPOPROTEIN INCREASED
     Dosage: UNK
     Route: 065
  7. REPATHA [Suspect]
     Active Substance: EVOLOCUMAB
     Indication: HYPERCHOLESTEROLAEMIA
     Dosage: 140 MILLIGRAM, Q2WK
     Route: 065
     Dates: start: 201810
  8. MAXZIDE [Concomitant]
     Active Substance: HYDROCHLOROTHIAZIDE\TRIAMTERENE
     Dosage: UNK
     Dates: start: 201906

REACTIONS (30)
  - Fatigue [Unknown]
  - Blood iron decreased [Unknown]
  - Blood pressure increased [Unknown]
  - Pulmonary embolism [Not Recovered/Not Resolved]
  - Glycosylated haemoglobin increased [Not Recovered/Not Resolved]
  - Back pain [Unknown]
  - Rash [Unknown]
  - Seasonal allergy [Unknown]
  - Pain [Unknown]
  - Gait inability [Unknown]
  - Sneezing [Recovered/Resolved]
  - Hypersomnia [Unknown]
  - Urticaria [Recovered/Resolved]
  - Muscle spasms [Recovered/Resolved]
  - Memory impairment [Unknown]
  - Blood glucose increased [Not Recovered/Not Resolved]
  - Dehydration [Unknown]
  - Bronchitis [Recovered/Resolved]
  - Trigger finger [Unknown]
  - Rhinorrhoea [Recovered/Resolved]
  - Pyrexia [Unknown]
  - Feeling abnormal [Unknown]
  - Anaemia [Unknown]
  - Antiphospholipid antibodies positive [Unknown]
  - Skin burning sensation [Unknown]
  - Contusion [Unknown]
  - Colon cancer [Unknown]
  - Hypotension [Unknown]
  - Heart rate increased [Unknown]
  - Sinus congestion [Not Recovered/Not Resolved]

NARRATIVE: CASE EVENT DATE: 2018
